FAERS Safety Report 18617902 (Version 1)
Quarter: 2020Q4

REPORT INFORMATION
  Report Type: Spontaneous
  Country: US (occurrence: US)
  Receive Date: 20201215
  Receipt Date: 20201215
  Transmission Date: 20210114
  Serious: Yes (Other)
  Sender: FDA-Public Use
  Company Number: US-CURIUM-199600106

PATIENT
  Age: 41 Year
  Sex: Female

DRUGS (1)
  1. TECHNESCAN MAG3 [Suspect]
     Active Substance: TECHNETIUM TC-99M TIATIDE
     Indication: RENAL SCAN
     Route: 042
     Dates: start: 19960515, end: 19960515

REACTIONS (3)
  - Dizziness [Unknown]
  - Headache [Unknown]
  - Oral discomfort [Unknown]

NARRATIVE: CASE EVENT DATE: 19960515
